FAERS Safety Report 8895586 (Version 1)
Quarter: 2012Q4

REPORT INFORMATION
  Report Type: Report from Study
  Country: BE (occurrence: BE)
  Receive Date: 20121107
  Receipt Date: 20121107
  Transmission Date: 20130627
  Serious: Yes (Hospitalization)
  Sender: FDA-Public Use
  Company Number: BE-TEVA-368333USA

PATIENT
  Age: 76 Year
  Sex: Female
  Weight: 51.4 kg

DRUGS (3)
  1. TREANDA [Suspect]
     Dosage: cycles 1 and 2
     Dates: start: 20120414
  2. TREANDA [Suspect]
     Route: 042
     Dates: start: 20120414, end: 20120821
  3. RITUXIMAB [Concomitant]

REACTIONS (3)
  - General physical health deterioration [Recovered/Resolved]
  - Vomiting [Recovered/Resolved]
  - Dehydration [Recovered/Resolved]
